FAERS Safety Report 19402216 (Version 2)
Quarter: 2021Q4

REPORT INFORMATION
  Report Type: Spontaneous
  Country: US (occurrence: US)
  Receive Date: 20210610
  Receipt Date: 20211015
  Transmission Date: 20220303
  Serious: No
  Sender: FDA-Public Use
  Company Number: US-COLLEGIUM PHARMACEUTICAL, INC.-2021CGM00165

PATIENT
  Sex: Male

DRUGS (4)
  1. NUCYNTA ER [Suspect]
     Active Substance: TAPENTADOL HYDROCHLORIDE
     Indication: Complex regional pain syndrome
     Dosage: UNK
     Dates: start: 2019
  2. TAPENTADOL [Suspect]
     Active Substance: TAPENTADOL
     Indication: Complex regional pain syndrome
  3. XTAMPZA ER [Suspect]
     Active Substance: OXYCODONE
     Indication: Complex regional pain syndrome
  4. OXYCONTIN [Suspect]
     Active Substance: OXYCODONE HYDROCHLORIDE
     Indication: Complex regional pain syndrome

REACTIONS (5)
  - Performance status decreased [Recovered/Resolved]
  - Abdominal discomfort [Unknown]
  - Pain [Recovered/Resolved]
  - Unevaluable event [Recovered/Resolved]
  - Drug ineffective [Recovered/Resolved]
